FAERS Safety Report 20429893 (Version 1)
Quarter: 2022Q1

REPORT INFORMATION
  Report Type: Report from Study
  Country: FR (occurrence: FR)
  Receive Date: 20220204
  Receipt Date: 20220204
  Transmission Date: 20220423
  Serious: Yes (Hospitalization)
  Sender: FDA-Public Use
  Company Number: FR-SERVIER-S18010954

PATIENT

DRUGS (8)
  1. ONCASPAR [Suspect]
     Active Substance: PEGASPARGASE
     Indication: Acute lymphocytic leukaemia
     Dosage: 4650 IU, QD, D12
     Route: 042
     Dates: start: 20181113
  2. METHYLPREDNISOLONE [Suspect]
     Active Substance: METHYLPREDNISOLONE
     Indication: Acute lymphocytic leukaemia
     Dosage: 110 MG,  D8 AND D28
     Route: 042
     Dates: start: 20181102
  3. TN UNSPECIFIED [Concomitant]
     Indication: Acute lymphocytic leukaemia
     Dosage: 2 MG, D8 AND D15
     Route: 042
     Dates: start: 20181109
  4. TN UNSPECIFIED [Concomitant]
     Indication: Acute lymphocytic leukaemia
     Dosage: 75 MG ON D8 AND D15
     Route: 042
     Dates: start: 20181109
  5. TN UNSPECIFIED [Concomitant]
     Indication: Acute lymphocytic leukaemia
     Dosage: 1860 MG, D9
     Route: 042
     Dates: start: 20181110, end: 20181110
  6. TN UNSPECIFIED [Concomitant]
     Indication: Acute lymphocytic leukaemia
     Dosage: 15 MG, 15 MG D9, D18, D25
     Route: 037
     Dates: start: 20181102
  7. TN UNSPECIFIED [Concomitant]
     Indication: Acute lymphocytic leukaemia
     Dosage: 30 MG,15 MG D9, D18, D25
     Dates: start: 20181105
  8. TN UNSPECIFIED [Concomitant]
     Indication: Acute lymphocytic leukaemia
     Dosage: 15 MG, 15 MG D9, D18, D25
     Route: 037
     Dates: start: 20181105

REACTIONS (1)
  - Insulin resistant diabetes [Recovered/Resolved]

NARRATIVE: CASE EVENT DATE: 20181117
